FAERS Safety Report 24593748 (Version 1)
Quarter: 2024Q4

REPORT INFORMATION
  Report Type: Spontaneous
  Country: US (occurrence: None)
  Receive Date: 20241108
  Receipt Date: 20241108
  Transmission Date: 20250114
  Serious: No
  Sender: Public
  Company Number: None

PATIENT
  Sex: Female

DRUGS (1)
  1. RINVOQ [Suspect]
     Active Substance: UPADACITINIB
     Indication: Rheumatoid arthritis
     Dosage: FREQUENCY : DAILY;?
     Route: 048
     Dates: start: 202406

REACTIONS (7)
  - Therapeutic product effect decreased [None]
  - Paraesthesia [None]
  - Loss of personal independence in daily activities [None]
  - Arthralgia [None]
  - Pain in extremity [None]
  - Neck pain [None]
  - Pain [None]
